FAERS Safety Report 5748605-X (Version None)
Quarter: 2008Q2

REPORT INFORMATION
  Report Type: 
  Country: None (occurrence: None)
  Receive Date: 20080521
  Receipt Date: 20080510
  Transmission Date: 20081010
  Serious: Yes (Hospitalization)
  Sender: FDA-Public Use
  Company Number: SP01911

PATIENT
  Age: 63 Year
  Sex: Female

DRUGS (1)
  1. VISICOL [Suspect]
     Indication: COLONOSCOPY
     Dosage: ORAL
     Route: 048
     Dates: start: 20080417, end: 20080418

REACTIONS (12)
  - ANAL PRURITUS [None]
  - ANORECTAL DISCOMFORT [None]
  - LIP SWELLING [None]
  - OEDEMA PERIPHERAL [None]
  - PARAESTHESIA [None]
  - PRURITUS [None]
  - RASH [None]
  - SKIN DISCOLOURATION [None]
  - SWELLING [None]
  - SWELLING FACE [None]
  - VAGINAL SWELLING [None]
  - VULVOVAGINAL MYCOTIC INFECTION [None]
